FAERS Safety Report 12267926 (Version 2)
Quarter: 2016Q3

REPORT INFORMATION
  Report Type: Spontaneous
  Country: US (occurrence: US)
  Receive Date: 20160414
  Receipt Date: 20160823
  Transmission Date: 20161109
  Serious: No
  Sender: FDA-Public Use
  Company Number: US-GLAXOSMITHKLINE-US2016GSK045136

PATIENT
  Age: 50 Year
  Sex: Female

DRUGS (12)
  1. CYCLOBENZAPRINE [Concomitant]
     Active Substance: CYCLOBENZAPRINE
  2. METFORMIN [Concomitant]
     Active Substance: METFORMIN HYDROCHLORIDE
  3. VICTOZA [Concomitant]
     Active Substance: LIRAGLUTIDE
  4. IBUPROFEN. [Concomitant]
     Active Substance: IBUPROFEN
  5. LEVETIRACETAM. [Concomitant]
     Active Substance: LEVETIRACETAM
  6. SIMVASTATIN. [Concomitant]
     Active Substance: SIMVASTATIN
  7. HYDROXYZINE [Concomitant]
     Active Substance: HYDROXYZINE\HYDROXYZINE HYDROCHLORIDE
  8. PHENYTOIN. [Concomitant]
     Active Substance: PHENYTOIN
  9. LOSARTAN POTASSIUM/HYDROCHLOROTHIAZIDE [Concomitant]
     Active Substance: HYDROCHLOROTHIAZIDE\LOSARTAN POTASSIUM
  10. VENTOLIN HFA [Suspect]
     Active Substance: ALBUTEROL SULFATE
     Indication: ASTHMA
     Dosage: UNK, U
  11. ADVAIR DISKUS [Suspect]
     Active Substance: FLUTICASONE PROPIONATE\SALMETEROL XINAFOATE
     Indication: ASTHMA
     Dosage: 1 PUFF(S), BID
     Route: 055
  12. VENTOLIN HFA [Suspect]
     Active Substance: ALBUTEROL SULFATE
     Indication: DYSPNOEA

REACTIONS (6)
  - Nasopharyngitis [Recovering/Resolving]
  - Cough [Recovering/Resolving]
  - Asthma [Unknown]
  - Dyspnoea [Recovering/Resolving]
  - Bronchitis [Recovering/Resolving]
  - Electrocardiogram abnormal [Unknown]

NARRATIVE: CASE EVENT DATE: 201607
